FAERS Safety Report 7692369-X (Version None)
Quarter: 2011Q3

REPORT INFORMATION
  Report Type: 
  Country: None (occurrence: None)
  Receive Date: 20110818
  Receipt Date: 20110810
  Transmission Date: 20111222
  Serious: Yes (Other)
  Sender: FDA-Public Use
  Company Number: US-NOVOPROD-333357

PATIENT
  Age: 71 Year
  Sex: Male

DRUGS (2)
  1. VICTOZA [Suspect]
     Indication: TYPE 2 DIABETES MELLITUS
     Dosage: UNK
     Route: 058
     Dates: start: 20110331, end: 20110719
  2. VICTOZA [Suspect]
     Indication: WEIGHT DECREASED

REACTIONS (2)
  - WEIGHT DECREASED [None]
  - PANCREATIC CARCINOMA [None]
